FAERS Safety Report 7027867-5 (Version None)
Quarter: 2010Q4

REPORT INFORMATION
  Report Type: 
  Country: None (occurrence: None)
  Receive Date: 20101005
  Receipt Date: 20100928
  Transmission Date: 20110411
  Serious: No
  Sender: FDA-Public Use
  Company Number: US-BIOGENIDEC-2010BI008207

PATIENT
  Age: 55 Year
  Sex: Female

DRUGS (1)
  1. TYSABRI [Suspect]
     Indication: MULTIPLE SCLEROSIS
     Route: 042
     Dates: start: 20100223

REACTIONS (10)
  - DEPRESSION [None]
  - DYSKINESIA [None]
  - FATIGUE [None]
  - GAIT DISTURBANCE [None]
  - GENERAL SYMPTOM [None]
  - HEADACHE [None]
  - MYALGIA [None]
  - SPEECH DISORDER [None]
  - URINARY TRACT INFECTION [None]
  - VISION BLURRED [None]
